FAERS Safety Report 25941728 (Version 2)
Quarter: 2025Q4

REPORT INFORMATION
  Report Type: Spontaneous
  Country: JP (occurrence: JP)
  Receive Date: 20251020
  Receipt Date: 20251119
  Transmission Date: 20260118
  Serious: Yes (Death, Hospitalization, Other)
  Sender: AMGEN
  Company Number: JP-AMGEN-JPNSP2025205345

PATIENT
  Age: 73 Year
  Sex: Male

DRUGS (3)
  1. MVASI [Suspect]
     Active Substance: BEVACIZUMAB-AWWB
     Indication: Small intestine adenocarcinoma
     Dosage: UNK, (DRIP INFUSION)
     Route: 040
  2. FLUOROURACIL\LEUCOVORIN CALCIUM\OXALIPLATIN [Concomitant]
     Active Substance: FLUOROURACIL\LEUCOVORIN CALCIUM\OXALIPLATIN
     Indication: Small intestine adenocarcinoma
     Dosage: UNK
     Route: 065
  3. FLUOROURACIL\IRINOTECAN\LEUCOVORIN [Concomitant]
     Active Substance: FLUOROURACIL\IRINOTECAN\LEUCOVORIN
     Indication: Small intestine adenocarcinoma
     Dosage: UNK
     Route: 065

REACTIONS (5)
  - Death [Fatal]
  - Interstitial lung disease [Unknown]
  - Small intestine adenocarcinoma [Unknown]
  - Drug effective for unapproved indication [Unknown]
  - Off label use [Unknown]
